FAERS Safety Report 10617758 (Version 4)
Quarter: 2015Q1

REPORT INFORMATION
  Report Type: Report from Study
  Country: US (occurrence: US)
  Receive Date: 20141201
  Receipt Date: 20150211
  Transmission Date: 20150720
  Serious: Yes (Other)
  Sender: FDA-Public Use
  Company Number: US-SA-2014SA164605

PATIENT
  Age: 53 Year
  Sex: Female

DRUGS (1)
  1. AUBAGIO [Suspect]
     Active Substance: TERIFLUNOMIDE
     Indication: MULTIPLE SCLEROSIS
     Route: 048
     Dates: start: 20141112

REACTIONS (8)
  - Alopecia [Unknown]
  - Breast mass [Unknown]
  - Neoplasm malignant [Unknown]
  - Influenza like illness [Unknown]
  - Blood pressure increased [Unknown]
  - Confusional state [Unknown]
  - Gastrointestinal disorder [Unknown]
  - Malaise [Unknown]
